FAERS Safety Report 7600899-1 (Version None)
Quarter: 2011Q2

REPORT INFORMATION
  Report Type: 
  Country: None (occurrence: None)
  Receive Date: 20110629
  Receipt Date: 20110615
  Transmission Date: 20111010
  Serious: Yes (Hospitalization)
  Sender: FDA-Public Use
  Company Number: 2011MA007236

PATIENT
  Age: 54 Year
  Sex: Male

DRUGS (2)
  1. LEVETIRACETAM [Concomitant]
  2. PHENYTOIN [Suspect]
     Indication: EPILEPSY
     Dosage: 300 MG; QD;
     Dates: end: 20070101

REACTIONS (5)
  - PSORIATIC ARTHROPATHY [None]
  - DRUG LEVEL DECREASED [None]
  - STATUS EPILEPTICUS [None]
  - STUPOR [None]
  - HIV TEST FALSE POSITIVE [None]
